FAERS Safety Report 7991237-3 (Version None)
Quarter: 2011Q4

REPORT INFORMATION
  Report Type: 
  Country: None (occurrence: None)
  Receive Date: 20111219
  Receipt Date: 20111213
  Transmission Date: 20120403
  Serious: Yes (Hospitalization)
  Sender: FDA-Public Use
  Company Number: US-GLAXOSMITHKLINE-B0753803A

PATIENT
  Age: 41 Year
  Sex: Female

DRUGS (1)
  1. AVANDAMET [Suspect]
     Indication: DIABETES MELLITUS
     Route: 048
     Dates: start: 20040101, end: 20041216

REACTIONS (5)
  - PALPITATIONS [None]
  - DYSPNOEA [None]
  - MYOCARDIAL INFARCTION [None]
  - CARDIAC DISORDER [None]
  - PAIN [None]
